FAERS Safety Report 10301395 (Version 1)
Quarter: 2014Q3

REPORT INFORMATION
  Report Type: Spontaneous
  Country: CA (occurrence: CA)
  Receive Date: 20140714
  Receipt Date: 20140714
  Transmission Date: 20150326
  Serious: Yes (Other)
  Sender: FDA-Public Use
  Company Number: CA-ROCHE-1434079

PATIENT
  Age: 61 Year
  Sex: Male

DRUGS (16)
  1. PREDNISOLONE. [Suspect]
     Active Substance: PREDNISOLONE
     Indication: NON-HODGKIN^S LYMPHOMA
     Route: 042
  2. PLAQUENIL [Concomitant]
     Active Substance: HYDROXYCHLOROQUINE SULFATE
  3. ONCOVIN [Suspect]
     Active Substance: VINCRISTINE SULFATE
     Indication: NON-HODGKIN^S LYMPHOMA
     Route: 042
  4. TYLENOL WITH CODEINE [Concomitant]
     Active Substance: ACETAMINOPHEN\CODEINE PHOSPHATE
     Dosage: AS REQUIRED.
     Route: 065
  5. ETODOLAC. [Concomitant]
     Active Substance: ETODOLAC
  6. FOLIC ACID. [Concomitant]
     Active Substance: FOLIC ACID
  7. LIPITOR [Concomitant]
     Active Substance: ATORVASTATIN CALCIUM
  8. RITUXAN [Suspect]
     Active Substance: RITUXIMAB
     Indication: NON-HODGKIN^S LYMPHOMA
     Route: 042
  9. TECTA [Concomitant]
     Active Substance: PANTOPRAZOLE MAGNESIUM
  10. PANTOLOC [Concomitant]
     Active Substance: PANTOPRAZOLE SODIUM
  11. ZOPICLONE [Concomitant]
     Active Substance: ZOPICLONE
  12. METHOTREXATE [Concomitant]
     Active Substance: METHOTREXATE
  13. HYDROXYDAUNORUBICIN [Suspect]
     Active Substance: DOXORUBICIN
     Indication: NON-HODGKIN^S LYMPHOMA
     Route: 042
  14. METFORMIN [Concomitant]
     Active Substance: METFORMIN HYDROCHLORIDE
     Route: 065
  15. CYCLOPHOSPHAMIDE. [Suspect]
     Active Substance: CYCLOPHOSPHAMIDE
     Indication: NON-HODGKIN^S LYMPHOMA
     Route: 042
  16. FLOVENT [Concomitant]
     Active Substance: FLUTICASONE PROPIONATE

REACTIONS (2)
  - Accident [Unknown]
  - Hand fracture [Not Recovered/Not Resolved]

NARRATIVE: CASE EVENT DATE: 20140709
